FAERS Safety Report 10606502 (Version 1)
Quarter: 2014Q4

REPORT INFORMATION
  Report Type: Spontaneous
  Country: None (occurrence: None)
  Receive Date: 20141121
  Receipt Date: 20141121
  Transmission Date: 20150529
  Serious: Yes (Disabling)
  Sender: FDA-Public Use
  Company Number: CO-DO-US-2014-003

PATIENT
  Sex: Female

DRUGS (6)
  1. AMILORIDE [Concomitant]
     Active Substance: AMILORIDE
  2. TRAVATAN [Concomitant]
     Active Substance: TRAVOPROST
  3. DONNATAL [Suspect]
     Active Substance: ATROPINE SULFATE\HYOSCYAMINE SULFATE\PHENOBARBITAL\SCOPOLAMINE HYDROBROMIDE
     Indication: ABDOMINAL PAIN UPPER
     Dosage: ONE TEASPOON
     Route: 048
     Dates: start: 20140710
  4. MULTI-VITAMINS (CALCIUM PANTOTHENATE, FOLIC ACID, VITAMINS NOS) [Concomitant]
     Active Substance: VITAMINS
  5. CLONAZEPAM. [Concomitant]
     Active Substance: CLONAZEPAM
  6. ANTACIDS [Concomitant]
     Active Substance: UNSPECIFIED INGREDIENT

REACTIONS (9)
  - Gastrooesophageal reflux disease [None]
  - Laryngeal oedema [None]
  - Throat irritation [None]
  - Cough [None]
  - Dyspnoea [None]
  - Choking sensation [None]
  - Vocal cord disorder [None]
  - Dysphonia [None]
  - Injury [None]

NARRATIVE: CASE EVENT DATE: 20140906
